FAERS Safety Report 4366753-6 (Version None)
Quarter: 2004Q2

REPORT INFORMATION
  Report Type: 
  Country: None (occurrence: None)
  Receive Date: 20040526
  Receipt Date: 20040526
  Transmission Date: 20050107
  Serious: Yes (Death)
  Sender: FDA-Public Use
  Company Number: None

PATIENT
  Age: 20 Year
  Sex: Female
  Weight: 55.8 kg

DRUGS (2)
  1. VINCRISTINE [Suspect]
     Indication: RHABDOMYOSARCOMA
     Dosage: 2 MG 1 DOSE IV
     Route: 042
     Dates: start: 20040409, end: 20040409
  2. CYCLOPHOSPHAMIDE [Suspect]
     Indication: METASTASES TO LUNG
     Dosage: 3,498 1 DOSE IV
     Route: 042
     Dates: start: 20040409, end: 20040409

REACTIONS (15)
  - BIOPSY LUNG ABNORMAL [None]
  - BLOOD PRESSURE DECREASED [None]
  - COUGH [None]
  - DEEP VEIN THROMBOSIS [None]
  - ECHOCARDIOGRAM ABNORMAL [None]
  - LUNG DISORDER [None]
  - LUNG INFILTRATION [None]
  - MYALGIA [None]
  - PNEUMOMEDIASTINUM [None]
  - PNEUMOTHORAX [None]
  - PYREXIA [None]
  - RESPIRATORY ACIDOSIS [None]
  - RESPIRATORY FAILURE [None]
  - SUBCUTANEOUS EMPHYSEMA [None]
  - THROMBOSIS [None]
